FAERS Safety Report 14367699 (Version 1)
Quarter: 2018Q1

REPORT INFORMATION
  Report Type: Spontaneous
  Country: US (occurrence: US)
  Receive Date: 20180108
  Receipt Date: 20180108
  Transmission Date: 20180509
  Serious: Yes (Life-Threatening, Disabling)
  Sender: FDA-Public Use
  Company Number: None

PATIENT
  Age: 62 Year
  Sex: Female
  Weight: 113.4 kg

DRUGS (21)
  1. REDUX [Suspect]
     Active Substance: DEXFENFLURAMINE HYDROCHLORIDE
     Indication: GLUCOSE TOLERANCE IMPAIRED
     Route: 048
     Dates: start: 19800101, end: 19900101
  2. GABAPENTIN. [Concomitant]
     Active Substance: GABAPENTIN
  3. DORZOLAMIDE [Concomitant]
     Active Substance: DORZOLAMIDE
  4. REDUX [Suspect]
     Active Substance: DEXFENFLURAMINE HYDROCHLORIDE
     Indication: PRODUCT USED FOR UNKNOWN INDICATION
     Route: 048
     Dates: start: 19800101, end: 19900101
  5. KETOTIFEN FUMARITE [Concomitant]
  6. POTASSIUM CL ER [Concomitant]
     Active Substance: POTASSIUM CHLORIDE
  7. FLUTICASONE. [Concomitant]
     Active Substance: FLUTICASONE
  8. TYLENOL [Concomitant]
     Active Substance: ACETAMINOPHEN
  9. SYMBICORT [Concomitant]
     Active Substance: BUDESONIDE\FORMOTEROL FUMARATE DIHYDRATE
  10. HUMALOG [Concomitant]
     Active Substance: INSULIN LISPRO
  11. LEVEMIRE INSULIN [Concomitant]
  12. LOSARTAN. [Concomitant]
     Active Substance: LOSARTAN
  13. FEN-PHEN [Suspect]
     Active Substance: FENFLURAMINE\PHENTERMINE
  14. MONTELUKAST [Concomitant]
     Active Substance: MONTELUKAST SODIUM
  15. METOPROLOL. [Concomitant]
     Active Substance: METOPROLOL
  16. NIFEDIDINE [Concomitant]
  17. FUROSEMIDE. [Concomitant]
     Active Substance: FUROSEMIDE
  18. RESTASIS [Concomitant]
     Active Substance: CYCLOSPORINE
  19. TRAVATAN-Z [Concomitant]
  20. PROVENTIL HFA [Concomitant]
     Active Substance: ALBUTEROL SULFATE
  21. MULTI-VITAMIN/MINERAL [Concomitant]

REACTIONS (3)
  - Disability [None]
  - Oedema [None]
  - Cardiac valve disease [None]

NARRATIVE: CASE EVENT DATE: 198001
